FAERS Safety Report 4637661-8 (Version None)
Quarter: 2005Q2

REPORT INFORMATION
  Report Type: 
  Country: None (occurrence: None)
  Receive Date: 20050418
  Receipt Date: 20050411
  Transmission Date: 20051028
  Serious: Yes (Other)
  Sender: FDA-Public Use
  Company Number: ZA-GLAXOSMITHKLINE-B0378172A

PATIENT
  Age: 20 Year
  Sex: Female

DRUGS (2)
  1. LAMICTAL [Suspect]
     Indication: MIGRAINE
     Dates: start: 20040101
  2. CYPROTERONE ACETATE + ETHINYLESTRADIOL [Concomitant]
     Indication: ACNE
     Route: 065

REACTIONS (2)
  - HIRSUTISM [None]
  - PSORIASIS [None]
